FAERS Safety Report 10928035 (Version 1)
Quarter: 2015Q1

REPORT INFORMATION
  Report Type: Spontaneous
  Country: US (occurrence: None)
  Receive Date: 20150317
  Receipt Date: 20150317
  Transmission Date: 20150721
  Serious: Yes (Other)
  Sender: FDA-Public Use
  Company Number: None

PATIENT

DRUGS (1)
  1. FENOFIBRATE. [Suspect]
     Active Substance: FENOFIBRATE

REACTIONS (2)
  - Documented hypersensitivity to administered product [None]
  - Bowel movement irregularity [None]

NARRATIVE: CASE EVENT DATE: 20150316
